FAERS Safety Report 8041088-9 (Version None)
Quarter: 2012Q1

REPORT INFORMATION
  Report Type: 
  Country: None (occurrence: None)
  Receive Date: 20120109
  Receipt Date: 20111229
  Transmission Date: 20120608
  Serious: Yes (Death, Hospitalization)
  Sender: FDA-Public Use
  Company Number: FK201200020

PATIENT
  Age: 77 Year
  Sex: Female
  Weight: 55 kg

DRUGS (10)
  1. PROLIA [Suspect]
     Indication: OSTEOPENIA
     Dosage: 60 MG, SUBCUTANEOUS
     Route: 058
     Dates: start: 20110812
  2. METHOTREXATE [Suspect]
     Indication: RHEUMATOID ARTHRITIS
     Dosage: 20 MG, SUBCUTANEOUS
     Route: 058
     Dates: start: 20080101, end: 20111103
  3. METFORMIN HCL [Concomitant]
  4. OMEPRAZOLE [Concomitant]
  5. RAMIPRIL [Concomitant]
  6. SIMVASTATIN [Concomitant]
  7. ADCAL D3 (LEKOVIT CA) (LEKOVIT CA) [Concomitant]
  8. ALENDRONATE SODIUM (ALENDRONATE SODIUM) (ALENDRONATE SODIUM) [Concomitant]
  9. FOLIC ACID [Concomitant]
  10. HYDROXYCHLOROQUINE (HYDROXYCHLOROQUINE) (HYDROXYCHLOROQUINE) [Concomitant]

REACTIONS (6)
  - HAEMOGLOBIN DECREASED [None]
  - WHITE BLOOD CELL COUNT DECREASED [None]
  - NEUTROPENIA [None]
  - PLATELET COUNT DECREASED [None]
  - STENOTROPHOMONAS INFECTION [None]
  - PNEUMONIA [None]
